FAERS Safety Report 9422551 (Version 2)
Quarter: 2013Q3

REPORT INFORMATION
  Report Type: Spontaneous
  Country: US (occurrence: US)
  Receive Date: 20130726
  Receipt Date: 20130819
  Transmission Date: 20140515
  Serious: Yes (Death)
  Sender: FDA-Public Use
  Company Number: US-INCYTE CORPORATION-2013IN001643

PATIENT
  Age: 78 Year
  Sex: Male

DRUGS (9)
  1. JAKAFI [Suspect]
     Indication: MYELOFIBROSIS
     Dosage: 10 MG, QD
     Route: 048
     Dates: start: 201204
  2. HYDROXYUREA [Concomitant]
  3. LISINOPRIL [Concomitant]
  4. HYDROCODONE [Concomitant]
  5. ASPIRIN [Concomitant]
  6. MELATONIN [Concomitant]
  7. VITAMIN B 12 [Concomitant]
  8. MULTIVITAMIN [Concomitant]
  9. CHLORPHENIRAMINE//HYDROCODONE/PHENYLEPHRINE [Concomitant]

REACTIONS (1)
  - Death [Fatal]
